FAERS Safety Report 9413393 (Version 2)
Quarter: 2013Q3

REPORT INFORMATION
  Report Type: Report from Study
  Country: CA (occurrence: CA)
  Receive Date: 20130722
  Receipt Date: 20130726
  Transmission Date: 20140515
  Serious: Yes (Hospitalization, Other)
  Sender: FDA-Public Use
  Company Number: CA-ASTELLAS-2013US007452

PATIENT
  Age: 65 Year
  Sex: Male
  Weight: 112 kg

DRUGS (15)
  1. ENZALUTAMIDE [Suspect]
     Indication: PROSTATE CANCER
     Dosage: 160 MG, UID/QD
     Route: 048
     Dates: start: 20130221, end: 20130710
  2. ENZALUTAMIDE [Suspect]
     Dosage: 160 MG, UID/QD
     Route: 048
     Dates: start: 20130718
  3. TRELSTAR LA [Concomitant]
     Indication: PROSTATE CANCER
     Dosage: 11.25 MG, EVERY 3 MONTHS
     Route: 030
     Dates: start: 2011
  4. DILAUDID [Concomitant]
     Indication: PAIN
     Dosage: 1 MG, PRN
     Route: 048
     Dates: start: 20121014
  5. DILAUDID [Concomitant]
     Indication: PROSTATE CANCER
  6. INDAPAMIDE [Concomitant]
     Indication: HYPERTENSION
     Dosage: 1.25 MG, UID/QD
     Route: 048
     Dates: start: 2004
  7. AMLODIPINE [Concomitant]
     Indication: HYPERTENSION
     Dosage: 10 MG, UID/QD
     Route: 048
     Dates: start: 2004
  8. ATENOLOL [Concomitant]
     Indication: HYPERTENSION
     Dosage: 100 MG, UID/QD
     Route: 048
     Dates: start: 2002
  9. FOSINOPRIL [Concomitant]
     Indication: HYPERTENSION
     Dosage: 20 MG, BID
     Route: 048
     Dates: start: 2001
  10. FRAGMIN [Concomitant]
     Indication: THROMBOPHLEBITIS
     Dosage: 18000 IU, UID/QD
     Route: 058
     Dates: start: 2010
  11. SENOKOT                            /00142201/ [Concomitant]
     Indication: CONSTIPATION
     Dosage: 1 UNK, PRN
     Route: 048
     Dates: start: 20130207
  12. TYLENOL ARTHRITIS [Concomitant]
     Indication: PAIN
     Dosage: 650 MG, BID
     Route: 048
     Dates: start: 20130207
  13. TYLENOL ARTHRITIS [Concomitant]
     Indication: PROSTATE CANCER
  14. ATIVAN [Concomitant]
     Indication: ANXIETY
     Dosage: 2 MG, PRN
     Route: 048
     Dates: start: 20130213
  15. EFFEXOR [Concomitant]
     Indication: DEPRESSION
     Dosage: 37.5 MG, UID/QD
     Route: 048
     Dates: start: 20130319

REACTIONS (2)
  - Ocular icterus [Recovered/Resolved]
  - Diarrhoea [Recovered/Resolved]
